FAERS Safety Report 21155777 (Version 1)
Quarter: 2022Q3

REPORT INFORMATION
  Report Type: Spontaneous
  Country: US (occurrence: US)
  Receive Date: 20220801
  Receipt Date: 20220801
  Transmission Date: 20221026
  Serious: No
  Sender: FDA-Public Use
  Company Number: US-BRISTOL-MYERS SQUIBB COMPANY-2022-072484

PATIENT
  Sex: Female

DRUGS (1)
  1. ELIQUIS [Suspect]
     Active Substance: APIXABAN
     Indication: Atrial fibrillation
     Dosage: DOSE : UNAVAILABLE (NOT PROVIDED);     FREQ : UNAVAILABLE (NOT PROVIDED)
     Route: 065
     Dates: start: 20220710

REACTIONS (3)
  - Vertigo [Unknown]
  - Muscle spasms [Unknown]
  - Dizziness [Unknown]

NARRATIVE: CASE EVENT DATE: 20220710
